FAERS Safety Report 15103933 (Version 3)
Quarter: 2018Q4

REPORT INFORMATION
  Report Type: Spontaneous
  Country: US (occurrence: US)
  Receive Date: 20180703
  Receipt Date: 20181029
  Transmission Date: 20190204
  Serious: Yes (Hospitalization)
  Sender: FDA-Public Use
  Company Number: US-OTSUKA-2018_017812

PATIENT
  Age: 18 Year
  Sex: Female

DRUGS (16)
  1. ABILIFY [Suspect]
     Active Substance: ARIPIPRAZOLE
     Indication: SUBSTANCE ABUSE
  2. DEPO-PROVERA [Concomitant]
     Active Substance: MEDROXYPROGESTERONE ACETATE
     Indication: CONTRACEPTION
     Dosage: 1 ML, EVERY 3 MONTHS
     Route: 030
  3. REQUIP [Concomitant]
     Active Substance: ROPINIROLE HYDROCHLORIDE
     Indication: RESTLESS LEGS SYNDROME
  4. ABILIFY [Suspect]
     Active Substance: ARIPIPRAZOLE
     Indication: POST-TRAUMATIC STRESS DISORDER
  5. ARIPIPRAZOLE. [Suspect]
     Active Substance: ARIPIPRAZOLE
     Indication: PRODUCT USED FOR UNKNOWN INDICATION
     Dosage: UNK
     Route: 065
     Dates: start: 20160607, end: 201705
  6. GABAPENTIN. [Concomitant]
     Active Substance: GABAPENTIN
     Indication: PARKINSON^S DISEASE
     Dosage: UNK
     Route: 065
  7. DEPO-MEDROL [Concomitant]
     Active Substance: METHYLPREDNISOLONE ACETATE
     Indication: BRONCHITIS
     Dosage: 1 ML X 1 DOSE
     Route: 030
  8. GABAPENTIN. [Concomitant]
     Active Substance: GABAPENTIN
     Indication: RESTLESS LEGS SYNDROME
  9. ABILIFY [Suspect]
     Active Substance: ARIPIPRAZOLE
     Indication: ATTENTION DEFICIT/HYPERACTIVITY DISORDER
  10. ABILIFY [Suspect]
     Active Substance: ARIPIPRAZOLE
     Indication: ALCOHOL ABUSE
  11. KENALOG [Concomitant]
     Active Substance: TRIAMCINOLONE ACETONIDE
     Indication: UPPER RESPIRATORY TRACT INFECTION
     Dosage: 1 ML X 1 DOSE
     Route: 030
  12. ABILIFY [Suspect]
     Active Substance: ARIPIPRAZOLE
     Indication: BIPOLAR DISORDER
     Dosage: 10 MG-20 MG, QD
     Route: 065
     Dates: start: 2004, end: 201705
  13. DEXAMETHASONE. [Concomitant]
     Active Substance: DEXAMETHASONE
     Indication: BRONCHITIS
     Dosage: 1 ML X 1 DOSE
     Route: 030
  14. ABILIFY [Suspect]
     Active Substance: ARIPIPRAZOLE
     Indication: ANXIETY
     Dosage: 15 MG, QD
     Route: 048
  15. ABILIFY [Suspect]
     Active Substance: ARIPIPRAZOLE
     Indication: MAJOR DEPRESSION
     Dosage: 5 MG, QD
     Route: 065
     Dates: start: 20071218
  16. REQUIP [Concomitant]
     Active Substance: ROPINIROLE HYDROCHLORIDE
     Indication: PARKINSON^S DISEASE
     Dosage: UNK
     Route: 065
     Dates: start: 201702, end: 201704

REACTIONS (43)
  - Lordosis [Unknown]
  - Abdominal pain [Unknown]
  - Sinus pain [Unknown]
  - Photophobia [Unknown]
  - Headache [Unknown]
  - Theft [Unknown]
  - Mental disorder [Unknown]
  - Shoplifting [Unknown]
  - Joint range of motion decreased [Unknown]
  - Asthma [Unknown]
  - Burning sensation [Unknown]
  - Oropharyngeal pain [Unknown]
  - Wheezing [Unknown]
  - Fatigue [Unknown]
  - Product use in unapproved indication [Unknown]
  - Sleep disorder [Unknown]
  - Pain [Unknown]
  - Diarrhoea [Unknown]
  - Nausea [Unknown]
  - Theft [Unknown]
  - Tenderness [Unknown]
  - Condition aggravated [Unknown]
  - Neck pain [Unknown]
  - Overweight [Unknown]
  - Muscle spasms [Unknown]
  - Myalgia [Unknown]
  - Compulsive sexual behaviour [Recovered/Resolved]
  - Attention deficit/hyperactivity disorder [Unknown]
  - Abnormal weight gain [Unknown]
  - Back pain [Unknown]
  - Irritability [Unknown]
  - Economic problem [Unknown]
  - Shoplifting [Unknown]
  - Lumbar spinal stenosis [Unknown]
  - Joint injury [Unknown]
  - Cough [Unknown]
  - Hypoglycaemia [Unknown]
  - Compulsive shopping [Recovered/Resolved]
  - Dizziness [Unknown]
  - Gambling disorder [Recovered/Resolved]
  - Visual field defect [Unknown]
  - Erythema [Unknown]
  - Diplopia [Unknown]

NARRATIVE: CASE EVENT DATE: 201012
